FAERS Safety Report 9258590 (Version 1)
Quarter: 2013Q2

REPORT INFORMATION
  Report Type: Spontaneous
  Country: US (occurrence: US)
  Receive Date: 20130426
  Receipt Date: 20130426
  Transmission Date: 20140414
  Serious: Yes (Death)
  Sender: FDA-Public Use
  Company Number: US-TEVA-400965USA

PATIENT
  Age: 55 Year
  Sex: Male

DRUGS (2)
  1. TREANDA [Suspect]
  2. RITUXIMAB [Suspect]

REACTIONS (2)
  - Death [Fatal]
  - Vein disorder [Unknown]
